FAERS Safety Report 5996072-3 (Version None)
Quarter: 2008Q4

REPORT INFORMATION
  Report Type: 
  Country: None (occurrence: None)
  Receive Date: 20081212
  Receipt Date: 20080620
  Transmission Date: 20090506
  Serious: No
  Sender: FDA-Public Use
  Company Number: US-AMGEN-KDL288870

PATIENT
  Sex: Male
  Weight: 46.3 kg

DRUGS (11)
  1. ENBREL [Suspect]
     Indication: ANKYLOSING SPONDYLITIS
  2. GINGKO BILOBA [Concomitant]
     Route: 048
     Dates: start: 19930101
  3. ZINC [Concomitant]
     Dates: start: 19750101
  4. ASPIRIN [Concomitant]
     Route: 048
  5. HYDROCODONE BITARTRATE [Concomitant]
     Route: 048
  6. MULTI-VITAMINS [Concomitant]
     Route: 048
  7. ASCORBIC ACID [Concomitant]
  8. ATORVASTATIN CALCIUM [Concomitant]
     Route: 048
  9. ESOMEPRAZOLE MAGNESIUM [Concomitant]
     Route: 048
     Dates: start: 20000101
  10. CITALOPRAM HYDROBROMIDE [Concomitant]
     Route: 048
  11. METOPROLOL SUCCINATE [Concomitant]

REACTIONS (1)
  - DRUG INEFFECTIVE [None]
